FAERS Safety Report 4564542-0 (Version None)
Quarter: 2005Q1

REPORT INFORMATION
  Report Type: 
  Country: None (occurrence: None)
  Receive Date: 20050126
  Receipt Date: 20050110
  Transmission Date: 20050727
  Serious: Yes (Disabling)
  Sender: FDA-Public Use
  Company Number: 9737

PATIENT
  Age: 40 Year
  Sex: Female

DRUGS (1)
  1. CYTARABINE [Suspect]
     Indication: ACUTE MYELOID LEUKAEMIA
     Dosage: 3GM/2 BID

REACTIONS (11)
  - ASTHENIA [None]
  - BONE MARROW DISORDER [None]
  - CEREBELLAR ATROPHY [None]
  - COORDINATION ABNORMAL [None]
  - DIPLOPIA [None]
  - DRUG TOXICITY [None]
  - MUSCULAR WEAKNESS [None]
  - NEUROTOXICITY [None]
  - PERIPHERAL SENSORIMOTOR NEUROPATHY [None]
  - PYREXIA [None]
  - REFUSAL OF TREATMENT BY PATIENT [None]
